FAERS Safety Report 10197291 (Version 2)
Quarter: 2014Q2

REPORT INFORMATION
  Report Type: Report from Study
  Country: RU (occurrence: RU)
  Receive Date: 20140527
  Receipt Date: 20140610
  Transmission Date: 20141212
  Serious: Yes (Disabling, Other)
  Sender: FDA-Public Use
  Company Number: PHHY2014RU063733

PATIENT
  Age: 73 Year
  Sex: Female

DRUGS (4)
  1. ACLASTA [Suspect]
     Indication: OSTEOPOROSIS
     Dosage: UKN
     Route: 042
     Dates: start: 2012
  2. ACLASTA [Suspect]
     Dosage: UKN
     Route: 042
     Dates: start: 20130830
  3. CALCIUM D3 NYCOMED [Concomitant]
     Dosage: UNK UKN, UNK
  4. ALFACALCIDOL [Concomitant]
     Dosage: UNK UKN, UNK

REACTIONS (3)
  - Radius fracture [Recovering/Resolving]
  - Fall [Unknown]
  - Drug ineffective [Recovering/Resolving]
